FAERS Safety Report 10708603 (Version 2)
Quarter: 2015Q1

REPORT INFORMATION
  Report Type: Report from Study
  Country: GB (occurrence: GB)
  Receive Date: 20150113
  Receipt Date: 20150122
  Transmission Date: 20150721
  Serious: Yes (Hospitalization, Other)
  Sender: FDA-Public Use
  Company Number: GB-GLAXOSMITHKLINE-GB2015GSK003457

PATIENT
  Sex: Male
  Weight: 96.7 kg

DRUGS (1)
  1. PAZOPANIB [Suspect]
     Active Substance: PAZOPANIB
     Indication: NEUROENDOCRINE TUMOUR
     Dosage: 400 MG, QD
     Route: 048
     Dates: start: 20140430, end: 20141218

REACTIONS (1)
  - Jaundice cholestatic [Not Recovered/Not Resolved]

NARRATIVE: CASE EVENT DATE: 20150104
